FAERS Safety Report 20737302 (Version 3)
Quarter: 2022Q4

REPORT INFORMATION
  Report Type: Spontaneous
  Country: JP (occurrence: None)
  Receive Date: 20220421
  Receipt Date: 20221207
  Transmission Date: 20230112
  Serious: Yes (Hospitalization, Other)
  Sender: FDA-Public Use
  Company Number: 2022A133528

PATIENT
  Age: 48 Year
  Sex: Male
  Weight: 52 kg

DRUGS (6)
  1. SEROQUEL [Suspect]
     Active Substance: QUETIAPINE FUMARATE
     Indication: Schizophrenia
     Dosage: UNK UNK, UNKNOWN FREQ
     Route: 048
  2. SEROQUEL [Suspect]
     Active Substance: QUETIAPINE FUMARATE
     Indication: Schizophrenia
     Dosage: 25 MG/DAY, UNKNOWN FREQ
     Route: 048
     Dates: start: 20220313, end: 20220313
  3. SEROQUEL [Suspect]
     Active Substance: QUETIAPINE FUMARATE
     Indication: Schizophrenia
     Dosage: 50 MG/DAY, UNKNOWN FREQ.
     Route: 048
     Dates: start: 20220314, end: 20220315
  4. SEROQUEL [Suspect]
     Active Substance: QUETIAPINE FUMARATE
     Indication: Schizophrenia
     Dosage: 75 MG/DAY, UNKNOWN FREQ.
     Route: 048
     Dates: start: 20220316, end: 20220317
  5. SEROQUEL [Suspect]
     Active Substance: QUETIAPINE FUMARATE
     Indication: Schizophrenia
     Dosage: 125 MG/DAY, UNKNOWN FREQ.
     Route: 048
     Dates: start: 20220318, end: 20220320
  6. SEROQUEL [Suspect]
     Active Substance: QUETIAPINE FUMARATE
     Indication: Schizophrenia
     Dosage: 100 MG/DAY, UNKNOWN FREQ.
     Route: 048
     Dates: start: 20220321, end: 20220321

REACTIONS (3)
  - Diabetes mellitus [Not Recovered/Not Resolved]
  - Cardiac failure [Unknown]
  - Hyperglycaemia [Recovered/Resolved with Sequelae]

NARRATIVE: CASE EVENT DATE: 20220313
